FAERS Safety Report 10070093 (Version 2)
Quarter: 2014Q2

REPORT INFORMATION
  Report Type: Spontaneous
  Country: KR (occurrence: KR)
  Receive Date: 20140410
  Receipt Date: 20140410
  Transmission Date: 20141212
  Serious: Yes (Life-Threatening, Hospitalization)
  Sender: FDA-Public Use
  Company Number: KR-009507513-1403KOR012054

PATIENT
  Age: 50 Year
  Sex: Male
  Weight: 75 kg

DRUGS (8)
  1. REMERON SOLTAB [Suspect]
     Indication: IRRITABILITY
     Dosage: UNK, QPM
     Route: 048
     Dates: start: 20140324
  2. REMERON SOLTAB [Suspect]
     Indication: INSOMNIA
  3. RIVOTRIL [Concomitant]
     Indication: IRRITABILITY
     Dosage: UNK
     Route: 048
     Dates: start: 20140324, end: 20140324
  4. RIVOTRIL [Concomitant]
     Indication: INSOMNIA
  5. ASPIRIN [Concomitant]
     Dosage: UNK
     Route: 048
     Dates: start: 20140317
  6. PLAVIX [Concomitant]
     Dosage: UNK
     Route: 048
     Dates: start: 20140317
  7. DIGOXIN [Concomitant]
     Dosage: UNK
     Route: 048
     Dates: start: 20140317
  8. LIPITOR [Concomitant]
     Dosage: UNK
     Route: 048
     Dates: start: 20140317

REACTIONS (3)
  - Oxygen saturation decreased [Recovered/Resolved]
  - Dyspnoea [Recovered/Resolved]
  - Pleural effusion [Unknown]
